FAERS Safety Report 14573210 (Version 4)
Quarter: 2019Q1

REPORT INFORMATION
  Report Type: Report from Study
  Country: US (occurrence: US)
  Receive Date: 20180226
  Receipt Date: 20190316
  Transmission Date: 20190417
  Serious: No
  Sender: FDA-Public Use
  Company Number: PHEH2018US007732

PATIENT
  Sex: Female

DRUGS (1)
  1. GILENYA [Suspect]
     Active Substance: FINGOLIMOD HYDROCHLORIDE
     Indication: MULTIPLE SCLEROSIS
     Dosage: 0.5 MG, QD
     Route: 048
     Dates: start: 20170713

REACTIONS (7)
  - Hypoaesthesia [Unknown]
  - Hepatic enzyme increased [Unknown]
  - Fall [Unknown]
  - Discomfort [Not Recovered/Not Resolved]
  - Contusion [Unknown]
  - Pain [Not Recovered/Not Resolved]
  - Paraesthesia [Unknown]
